FAERS Safety Report 7003121-2 (Version None)
Quarter: 2010Q3

REPORT INFORMATION
  Report Type: 
  Country: None (occurrence: None)
  Receive Date: 20100920
  Receipt Date: 20100427
  Transmission Date: 20110219
  Serious: Yes (Other)
  Sender: FDA-Public Use
  Company Number: US-ASTRAZENECA-2010SE13561

PATIENT
  Age: 39 Year
  Sex: Male

DRUGS (2)
  1. SEROQUEL XR [Suspect]
     Indication: BIPOLAR DISORDER
     Route: 048
     Dates: start: 20090401, end: 20100301
  2. SEROQUEL XR [Suspect]
     Route: 048
     Dates: start: 20100301, end: 20100423

REACTIONS (7)
  - ASTHENIA [None]
  - DECREASED APPETITE [None]
  - DIZZINESS [None]
  - DRUG DOSE OMISSION [None]
  - INSOMNIA [None]
  - SUICIDAL IDEATION [None]
  - VOMITING [None]
